FAERS Safety Report 8265415-2 (Version None)
Quarter: 2012Q2

REPORT INFORMATION
  Report Type: 
  Country: None (occurrence: None)
  Receive Date: 20120406
  Receipt Date: 20120403
  Transmission Date: 20120825
  Serious: Yes (Other)
  Sender: FDA-Public Use
  Company Number: GB-PFIZER INC-2012013959

PATIENT
  Sex: Female

DRUGS (4)
  1. CYMBALTA [Concomitant]
     Dosage: 60 MG, A DAY
  2. PREGABALIN [Concomitant]
     Dosage: 300 MG, A DAY
  3. VARENICLINE TARTRATE [Suspect]
     Indication: SMOKING CESSATION THERAPY
     Dosage: UNK
  4. MIRTAZAPINE [Concomitant]
     Dosage: 45 MG, A DAY

REACTIONS (2)
  - SURGERY [None]
  - DEPRESSION [None]
